FAERS Safety Report 6063013-2 (Version None)
Quarter: 2009Q1

REPORT INFORMATION
  Report Type: 
  Country: None (occurrence: None)
  Receive Date: 20090203
  Receipt Date: 20090127
  Transmission Date: 20090719
  Serious: Yes (Hospitalization)
  Sender: FDA-Public Use
  Company Number: JP-MERCK-0812USA00657

PATIENT
  Age: 80 Year
  Sex: Male

DRUGS (23)
  1. FOSAMAX [Suspect]
     Indication: OSTEOPOROSIS
     Route: 048
     Dates: start: 20080118, end: 20081010
  2. FOSAMAX [Suspect]
     Route: 048
     Dates: start: 20071219, end: 20080117
  3. RHEUMATREX [Suspect]
     Indication: SERONEGATIVE ARTHRITIS
     Route: 048
     Dates: start: 20080215, end: 20080228
  4. PREDNISOLONE [Concomitant]
     Indication: SERONEGATIVE ARTHRITIS
     Route: 048
     Dates: start: 20071228, end: 20080110
  5. AVISHOT [Concomitant]
     Indication: BENIGN PROSTATIC HYPERPLASIA
     Route: 048
     Dates: start: 20071203
  6. ADALAT CC [Concomitant]
     Indication: HYPERTENSION
     Route: 048
     Dates: start: 20071130, end: 20081010
  7. BASEN [Concomitant]
     Indication: DIABETES MELLITUS
     Route: 048
     Dates: start: 20071130, end: 20081010
  8. PREDNISOLONE [Concomitant]
     Indication: RHEUMATOID ARTHRITIS
     Route: 048
     Dates: start: 20071214, end: 20071220
  9. PREDNISOLONE [Concomitant]
     Route: 048
     Dates: start: 20071221, end: 20071227
  10. PREDNISOLONE [Concomitant]
     Route: 048
     Dates: start: 20080111, end: 20080117
  11. PREDNISOLONE [Concomitant]
     Route: 048
     Dates: start: 20080118, end: 20080124
  12. PREDNISOLONE [Concomitant]
     Route: 048
     Dates: start: 20080125, end: 20080228
  13. PREDNISOLONE [Concomitant]
     Route: 048
     Dates: start: 20080229, end: 20080403
  14. PREDNISOLONE [Concomitant]
     Route: 048
     Dates: start: 20080404, end: 20080515
  15. PREDNISOLONE [Concomitant]
     Route: 048
     Dates: start: 20080516, end: 20080612
  16. PREDNISOLONE [Concomitant]
     Route: 048
     Dates: start: 20080613, end: 20081030
  17. PREDNISOLONE [Concomitant]
     Route: 048
     Dates: start: 20081031
  18. PREDNISOLONE [Concomitant]
     Route: 048
     Dates: start: 20080229, end: 20080403
  19. BAKTAR [Concomitant]
     Route: 048
     Dates: start: 20080111, end: 20080320
  20. RHEUMATREX [Suspect]
     Route: 048
     Dates: start: 20080229, end: 20080320
  21. RHEUMATREX [Suspect]
     Route: 048
     Dates: start: 20080321, end: 20080808
  22. KETAS [Suspect]
     Indication: CEREBROVASCULAR DISORDER
     Route: 048
     Dates: start: 20071130, end: 20081010
  23. AMARYL [Suspect]
     Indication: DIABETES MELLITUS
     Route: 065
     Dates: start: 20071130, end: 20081010

REACTIONS (1)
  - ERYTHEMA MULTIFORME [None]
